FAERS Safety Report 16787716 (Version 1)
Quarter: 2019Q3

REPORT INFORMATION
  Report Type: Spontaneous
  Country: DE (occurrence: DE)
  Receive Date: 20190909
  Receipt Date: 20190909
  Transmission Date: 20191005
  Serious: Yes (Life-Threatening, Hospitalization, Other)
  Sender: FDA-Public Use
  Company Number: DE-PFIZER INC-2019386500

PATIENT
  Age: 31 Year
  Sex: Male
  Weight: 66 kg

DRUGS (6)
  1. ESOMEPRAZOL [Concomitant]
     Active Substance: ESOMEPRAZOLE
     Dosage: 20 MG, 1X/DAY (1-0-0)
  2. PIPAMPERONE [Concomitant]
     Active Substance: PIPAMPERONE
     Dosage: 20 MG, 2X/DAY (1-0-1)
  3. TAVOR [Concomitant]
     Dosage: UNK, AS NEEDED
  4. RISPERIDON [Concomitant]
     Active Substance: RISPERIDONE
     Dosage: 2.5 MG, AS NEEDED
  5. QUETIAPIN [Concomitant]
     Active Substance: QUETIAPINE
     Dosage: 500 MG, DAILY (200 MG IN THE MORNING, 300 MG AT NIGHT)
  6. SERTRALINE HCL [Suspect]
     Active Substance: SERTRALINE HYDROCHLORIDE
     Dosage: 100 MG, 1X/DAY (1-0-0)
     Dates: end: 2019

REACTIONS (2)
  - Brain oedema [Recovered/Resolved]
  - Hyponatraemia [Recovered/Resolved]

NARRATIVE: CASE EVENT DATE: 20190725
